FAERS Safety Report 9452547 (Version 1)
Quarter: 2013Q3

REPORT INFORMATION
  Report Type: Spontaneous
  Country: US (occurrence: US)
  Receive Date: 20130812
  Receipt Date: 20130812
  Transmission Date: 20140515
  Serious: No
  Sender: FDA-Public Use
  Company Number: US-PFIZER INC-2013230673

PATIENT
  Age: 4 Year
  Sex: Female

DRUGS (2)
  1. RAPAMUNE [Suspect]
     Dosage: UNK
  2. CELLCEPT [Suspect]
     Dosage: UNK

REACTIONS (2)
  - Off label use [Unknown]
  - Hair growth abnormal [Unknown]
